FAERS Safety Report 25946733 (Version 1)
Quarter: 2025Q4

REPORT INFORMATION
  Report Type: Report from Study
  Country: GB (occurrence: GB)
  Receive Date: 20251022
  Receipt Date: 20251022
  Transmission Date: 20260118
  Serious: Yes (Hospitalization)
  Sender: ABBVIE
  Company Number: GB-ABBVIE-6511535

PATIENT
  Age: 90 Year
  Sex: Female

DRUGS (1)
  1. SKYRIZI [Suspect]
     Active Substance: RISANKIZUMAB-RZAA
     Indication: Crohn^s disease
     Dosage: 1 X SKYRIZI (RISANKIZUMAB) 360MG/2.4ML CARTRIDGE + ON BODY DEVICE
     Route: 058
     Dates: start: 20241216

REACTIONS (3)
  - Cholelithiasis [Recovered/Resolved]
  - Crohn^s disease [Recovering/Resolving]
  - Injection site bruising [Unknown]

NARRATIVE: CASE EVENT DATE: 20250101
